FAERS Safety Report 21018045 (Version 1)
Quarter: 2022Q2

REPORT INFORMATION
  Report Type: Spontaneous
  Country: US (occurrence: None)
  Receive Date: 20220627
  Receipt Date: 20220627
  Transmission Date: 20220721
  Serious: Yes (Hospitalization)
  Sender: FDA-Public Use
  Company Number: None

PATIENT
  Age: 56 Year
  Sex: Female

DRUGS (1)
  1. REBIF REBIDOSE [Suspect]
     Active Substance: INTERFERON BETA-1A
     Indication: Multiple sclerosis
     Dosage: 44 MCG THRE TIMES WEEKLY SC? ?
     Route: 058
     Dates: start: 20100505

REACTIONS (4)
  - Multiple sclerosis relapse [None]
  - Pain in extremity [None]
  - Muscle spasms [None]
  - Coronavirus test positive [None]

NARRATIVE: CASE EVENT DATE: 20220624
